FAERS Safety Report 9777606 (Version 2)
Quarter: 2013Q4

REPORT INFORMATION
  Report Type: Other
  Country: FR (occurrence: FR)
  Receive Date: 20131222
  Receipt Date: 20131227
  Transmission Date: 20140711
  Serious: Yes (Other)
  Sender: FDA-Public Use
  Company Number: FR-BRISTOL-MYERS SQUIBB COMPANY-19936061

PATIENT
  Age: 21 Year
  Sex: Male

DRUGS (2)
  1. ARIPIPRAZOLE [Suspect]
  2. RISPERIDONE [Suspect]

REACTIONS (1)
  - Pulmonary embolism [Recovered/Resolved]
